FAERS Safety Report 6707074-3 (Version None)
Quarter: 2010Q2

REPORT INFORMATION
  Report Type: 
  Country: None (occurrence: None)
  Receive Date: 20100503
  Receipt Date: 20100421
  Transmission Date: 20101027
  Serious: Yes (Other)
  Sender: FDA-Public Use
  Company Number: A0748223A

PATIENT
  Sex: Female

DRUGS (1)
  1. ZOVIRAX [Suspect]
     Indication: HERPES VIRUS INFECTION
     Route: 061

REACTIONS (21)
  - COUGH [None]
  - DRUG INEFFECTIVE [None]
  - DYSPNOEA [None]
  - EXPIRED DRUG ADMINISTERED [None]
  - GLAUCOMA [None]
  - HEADACHE [None]
  - HERPES VIRUS INFECTION [None]
  - ILL-DEFINED DISORDER [None]
  - IMPAIRED WORK ABILITY [None]
  - IMPETIGO [None]
  - NASAL DISCOMFORT [None]
  - NASAL OEDEMA [None]
  - NASOPHARYNGITIS [None]
  - ORAL HERPES [None]
  - OROPHARYNGEAL PAIN [None]
  - PAIN [None]
  - PARAESTHESIA [None]
  - PURULENT DISCHARGE [None]
  - SCAB [None]
  - SKIN DISCOLOURATION [None]
  - SNEEZING [None]
